FAERS Safety Report 5312837-5 (Version None)
Quarter: 2007Q1

REPORT INFORMATION
  Report Type: 
  Country: None (occurrence: None)
  Receive Date: 20070201
  Receipt Date: 20061204
  Transmission Date: 20070707
  Serious: No
  Sender: FDA-Public Use
  Company Number: 259136

PATIENT
  Age: 42 Year
  Sex: Female
  Weight: 52.2 kg

DRUGS (3)
  1. LEVEMIR [Suspect]
     Indication: DIABETES MELLITUS INSULIN-DEPENDENT
     Dosage: 13 IU, QD, SUBCUTANEOUS
     Route: 058
     Dates: start: 20060601
  2. LISINOPRIL [Concomitant]
  3. NOVOLOG [Concomitant]

REACTIONS (1)
  - BLOOD GLUCOSE INCREASED [None]
